FAERS Safety Report 5964884-8 (Version None)
Quarter: 2008Q4

REPORT INFORMATION
  Report Type: 
  Country: None (occurrence: None)
  Receive Date: 20081121
  Receipt Date: 20081107
  Transmission Date: 20090506
  Serious: Yes (Hospitalization)
  Sender: FDA-Public Use
  Company Number: 8039323

PATIENT
  Age: 46 Year
  Sex: Female
  Weight: 280 kg

DRUGS (12)
  1. CIMZIA [Suspect]
     Indication: CROHN'S DISEASE
     Dosage: 400 MG 1/2W SC
     Route: 058
     Dates: start: 20080816
  2. PROTONIX /01263201/ [Concomitant]
  3. EFFEXOR XR [Concomitant]
  4. BENTYL [Concomitant]
  5. TRAMADOL /00599202/ [Concomitant]
  6. REGLAN [Concomitant]
  7. SYMAX [Concomitant]
  8. TYLENOL (CAPLET) [Concomitant]
  9. ADVAIR HFA [Concomitant]
  10. MYCELEX [Concomitant]
  11. CLARITIN /00917501/ [Concomitant]
  12. PREDNISONE /00044702/ [Concomitant]

REACTIONS (1)
  - UPPER RESPIRATORY TRACT INFECTION [None]
